FAERS Safety Report 24111870 (Version 1)
Quarter: 2024Q3

REPORT INFORMATION
  Report Type: Report from Study
  Country: US (occurrence: US)
  Receive Date: 20240718
  Receipt Date: 20240718
  Transmission Date: 20241017
  Serious: Yes (Death)
  Sender: ABBVIE
  Company Number: US-ABBVIE-5357625

PATIENT
  Sex: Male

DRUGS (1)
  1. VENCLEXTA [Suspect]
     Active Substance: VENETOCLAX
     Indication: Myelodysplastic syndrome
     Dosage: FORM STRENGTH: 100 MILLIGRAM, TAKE 1 TABLET BY MOUTH DAILY FOR 14 DAYS EVERY 28 DAYS (2 WEEKS ON,...
     Route: 048

REACTIONS (2)
  - Death [Fatal]
  - Off label use [Unknown]
